FAERS Safety Report 26031842 (Version 2)
Quarter: 2025Q4

REPORT INFORMATION
  Report Type: Report from Study
  Country: US (occurrence: None)
  Receive Date: 20251112
  Receipt Date: 20251215
  Transmission Date: 20260117
  Serious: Yes (Hospitalization, Other)
  Sender: UCB
  Company Number: US-UCBSA-2025020519

PATIENT
  Age: 8 Year
  Weight: 33.69 kg

DRUGS (5)
  1. FENFLURAMINE [Suspect]
     Active Substance: FENFLURAMINE
     Indication: Lennox-Gastaut syndrome
     Dosage: 5.6 MILLILITER, 2X/DAY (BID)
     Route: 061
  2. FENFLURAMINE [Suspect]
     Active Substance: FENFLURAMINE
     Dosage: 1.6 MILLILITER, 2X/DAY (BID)
     Route: 061
  3. FENFLURAMINE [Suspect]
     Active Substance: FENFLURAMINE
     Dosage: 1.6 MILLILITER, 2X/DAY (BID)
  4. FELBAMATE [Concomitant]
     Active Substance: FELBAMATE
     Indication: Epilepsy
     Dosage: 200 MILLIGRAM
  5. APTIOM [Concomitant]
     Active Substance: ESLICARBAZEPINE ACETATE
     Indication: Epilepsy
     Dosage: 200 MILLIGRAM

REACTIONS (5)
  - Metapneumovirus infection [Recovered/Resolved]
  - Vagal nerve stimulator implantation [Unknown]
  - Nausea [Recovered/Resolved]
  - Right ventricular systolic pressure increased [Unknown]
  - Pulmonary arterial pressure increased [Not Recovered/Not Resolved]
